FAERS Safety Report 7973433-4 (Version None)
Quarter: 2011Q4

REPORT INFORMATION
  Report Type: 
  Country: None (occurrence: None)
  Receive Date: 20111213
  Receipt Date: 20111208
  Transmission Date: 20120403
  Serious: Yes (Death, Congenital Anomaly, Other)
  Sender: FDA-Public Use
  Company Number: US-ABBOTT-11P-163-0880474-00

PATIENT

DRUGS (3)
  1. NORVIR [Suspect]
     Indication: MATERNAL EXPOSURE TIMING UNSPECIFIED
     Route: 064
  2. TRUVADA [Suspect]
     Indication: MATERNAL EXPOSURE TIMING UNSPECIFIED
     Route: 064
  3. REYATAZ [Suspect]
     Indication: MATERNAL EXPOSURE TIMING UNSPECIFIED
     Route: 064

REACTIONS (7)
  - CEREBRAL HAEMORRHAGE [None]
  - PREMATURE BABY [None]
  - HYPOXIA [None]
  - GENETIC POLYMORPHISM [None]
  - CYTOGENETIC ABNORMALITY [None]
  - LIMB MALFORMATION [None]
  - FOETAL EXPOSURE DURING PREGNANCY [None]
